FAERS Safety Report 19710710 (Version 1)
Quarter: 2021Q3

REPORT INFORMATION
  Report Type: Spontaneous
  Country: RU (occurrence: US)
  Receive Date: 20210816
  Receipt Date: 20210816
  Transmission Date: 20211014
  Serious: No
  Sender: FDA-Public Use
  Company Number: RU-TARO-2021TAR00209

PATIENT

DRUGS (1)
  1. TERBINAFINE CREAM 1% [Suspect]
     Active Substance: TERBINAFINE
     Indication: FUNGAL SKIN INFECTION
     Dosage: UNK
     Route: 065

REACTIONS (1)
  - Drug ineffective [Unknown]
